FAERS Safety Report 4493029-9 (Version None)
Quarter: 2004Q4

REPORT INFORMATION
  Report Type: 
  Country: None (occurrence: None)
  Receive Date: 20041101
  Receipt Date: 20041019
  Transmission Date: 20050328
  Serious: Yes (Death)
  Sender: FDA-Public Use
  Company Number: 2004239736JP

PATIENT
  Age: 73 Year
  Sex: Male

DRUGS (4)
  1. DOXORUBICIN HYDROCHLORIDE [Suspect]
     Indication: LYMPHOMA
     Dosage: CYCLIC
  2. CYCLOPHOSPHAMIDE [Suspect]
     Indication: LYMPHOMA
     Dosage: CYCLIC
  3. VINCRISTINE [Suspect]
     Indication: LYMPHOMA
     Dosage: CYCLIC
  4. DELTASONE [Suspect]
     Indication: LYMPHOMA
     Dosage: CYCLIC

REACTIONS (1)
  - SEPTIC SHOCK [None]
